FAERS Safety Report 7518245-0 (Version None)
Quarter: 2011Q2

REPORT INFORMATION
  Report Type: 
  Country: None (occurrence: None)
  Receive Date: 20110602
  Receipt Date: 20110519
  Transmission Date: 20111010
  Serious: Yes (Hospitalization)
  Sender: FDA-Public Use
  Company Number: IT-CELGENEUS-083-21880-11040374

PATIENT
  Sex: Male
  Weight: 90 kg

DRUGS (9)
  1. REVLIMID [Suspect]
     Dosage: 10 MILLIGRAM
     Route: 048
     Dates: start: 20110517
  2. REVLIMID [Suspect]
     Dosage: 25 MILLIGRAM
     Route: 048
     Dates: start: 20110315, end: 20110402
  3. BACTRIM [Concomitant]
     Route: 048
     Dates: start: 20110215, end: 20110402
  4. DEXAMETHASONE [Suspect]
     Route: 048
     Dates: start: 20110215, end: 20110402
  5. BACTRIM [Concomitant]
     Indication: ANTI-INFECTIVE THERAPY
     Route: 048
     Dates: start: 20110215
  6. ENOXAPARIN SODIUM [Concomitant]
     Indication: THROMBOSIS PROPHYLAXIS
     Dosage: 4000 IU (INTERNATIONAL UNIT)
     Route: 048
     Dates: start: 20110215
  7. BACTRIM [Concomitant]
     Route: 048
     Dates: start: 20110517
  8. REVLIMID [Suspect]
     Indication: MULTIPLE MYELOMA
     Dosage: 25 MILLIGRAM
     Route: 048
     Dates: start: 20110215, end: 20110307
  9. DEXAMETHASONE [Suspect]
     Indication: MULTIPLE MYELOMA
     Route: 048
     Dates: start: 20110215, end: 20110314

REACTIONS (1)
  - PSYCHOMOTOR HYPERACTIVITY [None]
